FAERS Safety Report 24464619 (Version 1)
Quarter: 2024Q4

REPORT INFORMATION
  Report Type: Report from Study
  Country: US (occurrence: US)
  Receive Date: 20241018
  Receipt Date: 20241018
  Transmission Date: 20250115
  Serious: No
  Sender: ROCHE
  Company Number: US-ROCHE-3501241

PATIENT
  Sex: Female

DRUGS (14)
  1. XOLAIR [Suspect]
     Active Substance: OMALIZUMAB
     Indication: Idiopathic urticaria
     Dosage: 150 MG/ML?ON 04/JAN/20222, MOST RECENT TREATMENT
     Route: 058
     Dates: start: 20210909
  2. XOLAIR [Suspect]
     Active Substance: OMALIZUMAB
     Dosage: ON 04/JAN/20222, MOST RECENT TREATMENT
     Route: 058
     Dates: start: 20220210, end: 20220214
  3. XOLAIR [Suspect]
     Active Substance: OMALIZUMAB
     Route: 058
     Dates: start: 20220401
  4. BENADRYL [Concomitant]
     Active Substance: DIPHENHYDRAMINE HYDROCHLORIDE
  5. ADRENALIN [Concomitant]
     Active Substance: EPINEPHRINE
  6. VENTOLIN HFA [Concomitant]
     Active Substance: ALBUTEROL SULFATE
     Indication: Dyspnoea
     Dosage: 90 MCG?INHALE 2 PUFFS VERY 6 HOURS
     Dates: start: 20211208, end: 20221208
  7. LIPITOR [Concomitant]
     Active Substance: ATORVASTATIN CALCIUM
     Dates: start: 20211208, end: 20220606
  8. VOLTAREN [Concomitant]
     Active Substance: DICLOFENAC SODIUM
     Route: 048
     Dates: start: 20211223, end: 20220323
  9. EPIPEN [Concomitant]
     Active Substance: EPINEPHRINE
     Dosage: 0.3MG/0.3ML
     Dates: start: 20150515
  10. ERGOCALCIFEROL [Concomitant]
     Active Substance: ERGOCALCIFEROL
  11. NEURONTIN [Concomitant]
     Active Substance: GABAPENTIN
     Route: 048
     Dates: start: 20220114, end: 20220414
  12. MOTRIN IB [Concomitant]
     Active Substance: IBUPROFEN
     Route: 048
  13. VITAMINS [Concomitant]
     Active Substance: VITAMINS
  14. ULTRAM [Concomitant]
     Active Substance: TRAMADOL HYDROCHLORIDE
     Dates: start: 20211223

REACTIONS (2)
  - Off label use [Unknown]
  - No adverse event [Unknown]
